FAERS Safety Report 24350682 (Version 1)
Quarter: 2024Q3

REPORT INFORMATION
  Report Type: Report from Study
  Country: PE (occurrence: PE)
  Receive Date: 20240923
  Receipt Date: 20240923
  Transmission Date: 20241017
  Serious: No
  Sender: ROCHE
  Company Number: PE-ROCHE-3522543

PATIENT
  Age: 52 Year
  Sex: Female

DRUGS (2)
  1. HERCEPTIN [Suspect]
     Active Substance: TRASTUZUMAB
     Indication: Breast cancer
     Route: 041
     Dates: start: 20240209
  2. PERJETA [Suspect]
     Active Substance: PERTUZUMAB
     Indication: Breast cancer
     Route: 042
     Dates: start: 20240209

REACTIONS (5)
  - Malaise [Unknown]
  - Vomiting [Unknown]
  - Abdominal pain upper [Unknown]
  - Ill-defined disorder [Recovering/Resolving]
  - Eating disorder [Unknown]

NARRATIVE: CASE EVENT DATE: 20240304
